FAERS Safety Report 6411379-3 (Version None)
Quarter: 2009Q4

REPORT INFORMATION
  Report Type: 
  Country: None (occurrence: None)
  Receive Date: 20091020
  Receipt Date: 20091007
  Transmission Date: 20100525
  Serious: Yes (Hospitalization)
  Sender: FDA-Public Use
  Company Number: 2009AC000034

PATIENT
  Age: 87 Year
  Sex: Female

DRUGS (14)
  1. DIGOXIN [Suspect]
     Dosage: 0.25 MG; QD; PO
     Route: 048
  2. LEVOTHYROXINE SODIUM [Concomitant]
  3. WARFARIN SODIUM [Concomitant]
  4. METOPROLOL [Concomitant]
  5. TYLENOL [Concomitant]
  6. DOCUSATE [Concomitant]
  7. PROTONIX [Concomitant]
  8. REGLAN [Concomitant]
  9. CARAFATE [Concomitant]
  10. MULTI-VITAMIN [Concomitant]
  11. LOPRESSOR [Concomitant]
  12. CARDIZEM [Concomitant]
  13. LEVOXYL [Concomitant]
  14. TOPROL-XL [Concomitant]

REACTIONS (15)
  - ANHEDONIA [None]
  - ANXIETY [None]
  - ATRIAL FIBRILLATION [None]
  - BRADYCARDIA [None]
  - CARDIOMYOPATHY [None]
  - CARDIOVASCULAR DISORDER [None]
  - ECONOMIC PROBLEM [None]
  - FAILURE TO THRIVE [None]
  - FALL [None]
  - FEMORAL NECK FRACTURE [None]
  - HYPOTHYROIDISM [None]
  - INJURY [None]
  - PAIN [None]
  - QUALITY OF LIFE DECREASED [None]
  - THERAPEUTIC AGENT TOXICITY [None]
